FAERS Safety Report 5657162-8 (Version None)
Quarter: 2008Q1

REPORT INFORMATION
  Report Type: 
  Country: None (occurrence: None)
  Receive Date: 20080310
  Receipt Date: 20080226
  Transmission Date: 20080703
  Serious: Yes (Hospitalization, Disabling, Other)
  Sender: FDA-Public Use
  Company Number: US-MERCK-0705USA01551

PATIENT
  Age: 63 Year
  Sex: Female

DRUGS (2)
  1. FOSAMAX [Suspect]
     Indication: OSTEOPOROSIS
     Route: 048
     Dates: start: 19980101, end: 20070301
  2. FOSAMAX PLUS D [Suspect]
     Route: 048

REACTIONS (7)
  - ADVERSE EVENT [None]
  - ANGIOPATHY [None]
  - DEPRESSION [None]
  - INFECTION [None]
  - PANCYTOPENIA [None]
  - RESORPTION BONE INCREASED [None]
  - TOOTH FRACTURE [None]
